FAERS Safety Report 6140445-5 (Version None)
Quarter: 2009Q2

REPORT INFORMATION
  Report Type: 
  Country: None (occurrence: None)
  Receive Date: 20090401
  Receipt Date: 20090320
  Transmission Date: 20091009
  Serious: Yes (Other)
  Sender: FDA-Public Use
  Company Number: GR-PFIZER INC-2009168878

PATIENT

DRUGS (1)
  1. ZOLOFT [Suspect]
     Indication: SOCIAL PHOBIA
     Route: 048

REACTIONS (3)
  - AMENORRHOEA [None]
  - CHROMATURIA [None]
  - SWEAT DISCOLOURATION [None]
